FAERS Safety Report 8844807 (Version 1)
Quarter: 2012Q4

REPORT INFORMATION
  Report Type: Spontaneous
  Country: US (occurrence: None)
  Receive Date: 20120928
  Receipt Date: 20120928
  Transmission Date: 20130627
  Serious: Yes (Other)
  Sender: FDA-Public Use
  Company Number: RB-39586-2012

PATIENT
  Age: 42 Year
  Sex: Male

DRUGS (1)
  1. SUBOXONE [Suspect]
     Indication: DRUG DEPENDENCE
     Route: 060
     Dates: start: 20120417

REACTIONS (3)
  - Somnolence [None]
  - Nausea [None]
  - Vomiting [None]
